FAERS Safety Report 9112408 (Version 1)
Quarter: 2013Q1

REPORT INFORMATION
  Report Type: Spontaneous
  Country: US (occurrence: US)
  Receive Date: 20130219
  Receipt Date: 20130219
  Transmission Date: 20140127
  Serious: No
  Sender: FDA-Public Use
  Company Number: US-BRISTOL-MYERS SQUIBB COMPANY-16413619

PATIENT
  Age: 63 Year
  Sex: Female
  Weight: 58 kg

DRUGS (3)
  1. ORENCIA FOR INJ [Suspect]
     Indication: RHEUMATOID ARTHRITIS
     Dosage: INTERR ON 29FEB2012:LAST INJ ON 16APR2012
     Route: 058
     Dates: start: 20120201
  2. METHOTREXATE [Concomitant]
     Route: 058
  3. PREDNISONE [Concomitant]
     Route: 048

REACTIONS (7)
  - Chest discomfort [Not Recovered/Not Resolved]
  - Rheumatoid arthritis [Unknown]
  - Aphthous stomatitis [Unknown]
  - Oral herpes [Unknown]
  - Muscle spasms [Unknown]
  - Influenza like illness [Unknown]
  - Sinusitis [Unknown]
